FAERS Safety Report 7668338-2 (Version None)
Quarter: 2011Q3

REPORT INFORMATION
  Report Type: 
  Country: None (occurrence: None)
  Receive Date: 20110808
  Receipt Date: 20110802
  Transmission Date: 20111222
  Serious: Yes (Hospitalization, Other)
  Sender: FDA-Public Use
  Company Number: JP-PFIZER INC-2011132671

PATIENT
  Age: 85 Year
  Sex: Male

DRUGS (17)
  1. LYRICA [Concomitant]
     Indication: POST HERPETIC NEURALGIA
     Dosage: 300 MG, 2X/DAY
     Route: 048
     Dates: end: 20110523
  2. MORPHINE HYDROCHLORIDE [Concomitant]
     Indication: POST HERPETIC NEURALGIA
     Dosage: 10 MG, 3X/DAY
     Route: 048
     Dates: end: 20110614
  3. AMARYL [Concomitant]
     Indication: DIABETES MELLITUS
     Dosage: 1.5 MG, 1X/DAY
     Route: 048
     Dates: start: 20110520, end: 20110614
  4. ALDACTONE [Concomitant]
     Indication: OEDEMA PERIPHERAL
     Dosage: 25 MG, 1X/DAY
     Route: 048
     Dates: start: 20110509, end: 20110530
  5. LASIX [Concomitant]
     Indication: OEDEMA PERIPHERAL
     Dosage: 20 MG, 1X/DAY
     Route: 048
     Dates: start: 20110520, end: 20110530
  6. FAMOTIDINE [Concomitant]
     Dosage: 20 MG, 2X/DAY
     Route: 048
     Dates: end: 20110519
  7. VITANEURIN [Concomitant]
     Indication: NEUROPATHY PERIPHERAL
     Dosage: 1 DF, 2X/DAY
     Route: 048
     Dates: end: 20110519
  8. GABAPENTIN [Suspect]
     Dosage: 400 MG, 3X/DAY
     Route: 048
     Dates: start: 20110530, end: 20110614
  9. OLMESARTAN MEDOXOMIL [Concomitant]
     Indication: HYPERTENSION
     Dosage: 10 MG, 1X/DAY
     Route: 048
     Dates: start: 20110509, end: 20110519
  10. FAMOTIDINE [Concomitant]
     Indication: GASTRITIS
     Dosage: 20 MG, 2X/DAY
     Route: 048
     Dates: start: 20110520, end: 20110614
  11. ZYRTEC [Concomitant]
     Indication: PRURITUS
     Dosage: 10 MG, 1X/DAY
     Route: 048
     Dates: end: 20110614
  12. GABAPENTIN [Suspect]
     Indication: POST HERPETIC NEURALGIA
     Dosage: 200 MG, 3X/DAY
     Route: 048
     Dates: start: 20110523, end: 20110529
  13. URIEF [Concomitant]
     Indication: BENIGN PROSTATIC HYPERPLASIA
     Dosage: 4 MG, 2X/DAY
     Route: 048
     Dates: start: 20110520, end: 20110614
  14. EURODIN [Concomitant]
     Indication: INSOMNIA
     Dosage: 2 MG, 1X/DAY
     Route: 048
     Dates: end: 20110614
  15. GLIMEPIRIDE [Concomitant]
     Indication: DIABETES MELLITUS
     Dosage: 1 MG, 1X/DAY
     Route: 048
     Dates: end: 20110519
  16. STOMIN A [Concomitant]
     Indication: TINNITUS
     Dosage: 2 DF, 3X/DAY
     Route: 048
     Dates: end: 20110519
  17. ACETAMINOPHEN [Concomitant]
     Indication: POST HERPETIC NEURALGIA
     Dosage: 200 MG, 3X/DAY
     Route: 048
     Dates: end: 20110614

REACTIONS (4)
  - RHABDOMYOLYSIS [None]
  - GENERALISED ERYTHEMA [None]
  - RENAL FAILURE ACUTE [None]
  - HYPERSENSITIVITY [None]
